FAERS Safety Report 7266073-6 (Version None)
Quarter: 2011Q1

REPORT INFORMATION
  Report Type: 
  Country: None (occurrence: None)
  Receive Date: 20110131
  Receipt Date: 20101025
  Transmission Date: 20110831
  Serious: No
  Sender: FDA-Public Use
  Company Number: US-ABBOTT-10P-163-0648275-00

PATIENT

DRUGS (2)
  1. LUPRON DEPOT [Suspect]
     Indication: VAGINAL HAEMORRHAGE
     Route: 047
  2. LUPRON DEPOT [Suspect]
     Indication: ANAEMIA

REACTIONS (8)
  - STRESS [None]
  - HORMONE LEVEL ABNORMAL [None]
  - HOT FLUSH [None]
  - HEADACHE [None]
  - MALAISE [None]
  - NIGHT SWEATS [None]
  - CRYING [None]
  - METRORRHAGIA [None]
